FAERS Safety Report 6028521-9 (Version None)
Quarter: 2008Q4

REPORT INFORMATION
  Report Type: 
  Country: None (occurrence: None)
  Receive Date: 20081222
  Receipt Date: 20081027
  Transmission Date: 20090506
  Serious: No
  Sender: FDA-Public Use
  Company Number: US-WYE-H06580808

PATIENT
  Age: 45 Year
  Sex: Female
  Weight: 81.72 kg

DRUGS (3)
  1. PRISTIQ [Suspect]
     Indication: PAIN IN EXTREMITY
     Dosage: 50 MG 1X PER 2 DAY, ORAL ; 50 MG 1X PER 1 DAY, ORAL
     Route: 048
     Dates: start: 20080301, end: 20081007
  2. PRISTIQ [Suspect]
     Indication: PAIN IN EXTREMITY
     Dosage: 50 MG 1X PER 2 DAY, ORAL ; 50 MG 1X PER 1 DAY, ORAL
     Route: 048
     Dates: start: 20081008, end: 20081022
  3. VITAMIN B COMPLEX (CALCIUM PANTOTHENATE/NICOTINAMIDE/PYRIDOXIN E) HYDR [Concomitant]
     Route: 066

REACTIONS (2)
  - DRUG WITHDRAWAL SYNDROME [None]
  - TINNITUS [None]
